FAERS Safety Report 8482157 (Version 4)
Quarter: 2012Q4

REPORT INFORMATION
  Report Type: 
  Country: JP (occurrence: JP)
  Receive Date: 20120329
  Receipt Date: 20121004
  Transmission Date: 20130627
  Serious: Yes (Hospitalization)
  Sender: FDA-Public Use
  Company Number: JP-ROCHE-1050895

PATIENT
  Age: 67 Year
  Sex: Female
  Weight: 52 kg

DRUGS (9)
  1. ACTEMRA [Suspect]
     Indication: RHEUMATOID ARTHRITIS
     Route: 041
     Dates: start: 2011, end: 20120217
  2. LOXONIN [Concomitant]
     Indication: RHEUMATOID ARTHRITIS
     Route: 048
  3. PARIET [Concomitant]
     Indication: PROPHYLAXIS
     Route: 048
  4. RHEUMATREX [Concomitant]
     Indication: RHEUMATOID ARTHRITIS
     Route: 048
  5. METHYCOBAL [Concomitant]
     Indication: NEUROPATHY PERIPHERAL
     Route: 048
  6. LIPITOR [Concomitant]
     Indication: HYPERLIPIDAEMIA
     Route: 048
  7. FOLIAMIN [Concomitant]
     Indication: PROPHYLAXIS
     Route: 048
  8. RALOXIFENE [Concomitant]
     Indication: OSTEOPOROSIS
     Route: 048
  9. SELBEX [Concomitant]
     Indication: GASTRITIS
     Route: 048

REACTIONS (1)
  - Subarachnoid haemorrhage [Recovered/Resolved]
